FAERS Safety Report 15415633 (Version 1)
Quarter: 2018Q3

REPORT INFORMATION
  Report Type: Spontaneous
  Country: US (occurrence: US)
  Receive Date: 20180922
  Receipt Date: 20180922
  Transmission Date: 20181010
  Serious: Yes (Other)
  Sender: FDA-Public Use
  Company Number: US-ACCORD-072607

PATIENT
  Sex: Female
  Weight: 121.56 kg

DRUGS (1)
  1. HYDROCHLOROTHIAZIDE. [Suspect]
     Active Substance: HYDROCHLOROTHIAZIDE
     Indication: INFLAMMATION
     Dosage: STRENGTH: 12.5 MG
     Route: 048
     Dates: start: 2017

REACTIONS (9)
  - Off label use [Unknown]
  - Hypertension [Not Recovered/Not Resolved]
  - Sinusitis [Recovered/Resolved]
  - Rash [Not Recovered/Not Resolved]
  - Condition aggravated [Not Recovered/Not Resolved]
  - Product use issue [Unknown]
  - Nephrolithiasis [Not Recovered/Not Resolved]
  - Infection [Not Recovered/Not Resolved]
  - Fungal infection [Recovered/Resolved]
